FAERS Safety Report 11064654 (Version 2)
Quarter: 2015Q2

REPORT INFORMATION
  Report Type: Spontaneous
  Country: US (occurrence: US)
  Receive Date: 20150424
  Receipt Date: 20150508
  Transmission Date: 20150821
  Serious: Yes (Hospitalization, Other)
  Sender: FDA-Public Use
  Company Number: US-TAKEDA-2015TUS005225

PATIENT
  Age: 72 Year
  Sex: Male
  Weight: 102.4 kg

DRUGS (9)
  1. BACTRIM [Concomitant]
     Active Substance: SULFAMETHOXAZOLE\TRIMETHOPRIM
     Indication: PROSTATITIS
     Dosage: UNK
     Route: 048
  2. CONTRAVE [Suspect]
     Active Substance: BUPROPION HYDROCHLORIDE\NALTREXONE HYDROCHLORIDE
     Dosage: TWO TABLETS IN MORNING AND 1 TABLET IN NIGHT
     Route: 048
     Dates: start: 20150305, end: 20150311
  3. CONTRAVE [Suspect]
     Active Substance: BUPROPION HYDROCHLORIDE\NALTREXONE HYDROCHLORIDE
     Dosage: TWO TABLETS IN MORNING AND 2 TABLETS IN NIGHT
     Route: 048
     Dates: start: 20150312, end: 20150313
  4. CONTRAVE [Suspect]
     Active Substance: BUPROPION HYDROCHLORIDE\NALTREXONE HYDROCHLORIDE
     Dosage: ONE TABLET DAILY IN MORNING, ONE TAB DAILY IN NIGHT
     Route: 048
  5. CONTRAVE [Suspect]
     Active Substance: BUPROPION HYDROCHLORIDE\NALTREXONE HYDROCHLORIDE
     Dosage: ONE TABLET DAILY IN MORNING, ONE TAB DAILY IN NIGHT
     Route: 048
     Dates: start: 20150226, end: 20150304
  6. FINASTERIDE. [Concomitant]
     Active Substance: FINASTERIDE
     Indication: PROSTATITIS
     Dosage: 5 MG, DAILY
     Route: 048
  7. CONTRAVE [Suspect]
     Active Substance: BUPROPION HYDROCHLORIDE\NALTREXONE HYDROCHLORIDE
     Dosage: ONE TABLET DAILY IN MORNING
     Route: 048
     Dates: start: 20150219, end: 20150225
  8. ALFUZOSIN [Concomitant]
     Active Substance: ALFUZOSIN
     Indication: PROSTATITIS
     Dosage: 10 MG, DAILY
     Route: 048
  9. CONTRAVE [Suspect]
     Active Substance: BUPROPION HYDROCHLORIDE\NALTREXONE HYDROCHLORIDE
     Indication: OVERWEIGHT
     Dosage: ONE TABLET DAILY IN MORNING
     Route: 048

REACTIONS (8)
  - Limb injury [Unknown]
  - Rib fracture [Unknown]
  - Muscle spasms [Unknown]
  - Incorrect dose administered [Recovered/Resolved]
  - Seizure [Recovered/Resolved]
  - Joint injury [Unknown]
  - Loss of consciousness [Unknown]
  - Drug ineffective [Recovered/Resolved]

NARRATIVE: CASE EVENT DATE: 20150219
